FAERS Safety Report 21728728 (Version 1)
Quarter: 2022Q4

REPORT INFORMATION
  Report Type: Spontaneous
  Country: CN (occurrence: CN)
  Receive Date: 20221214
  Receipt Date: 20221214
  Transmission Date: 20230112
  Serious: Yes (Hospitalization)
  Sender: FDA-Public Use
  Company Number: None

PATIENT
  Age: 78 Year
  Sex: Male
  Weight: 55 kg

DRUGS (9)
  1. CYCLOPHOSPHAMIDE [Suspect]
     Active Substance: CYCLOPHOSPHAMIDE
     Indication: Neoplasm malignant
     Dosage: 0.6 G, QD, DILUTED WITH 100 ML 0.9% SODIUM CHLORIDE
     Route: 041
     Dates: start: 20221107, end: 20221107
  2. CYCLOPHOSPHAMIDE [Suspect]
     Active Substance: CYCLOPHOSPHAMIDE
     Indication: Chemotherapy
  3. SODIUM CHLORIDE [Suspect]
     Active Substance: SODIUM CHLORIDE
     Indication: Medication dilution
     Dosage: 100 ML, QD, USED TO DILUTE 0.6 G CYCLOPHOSPHAMIDE
     Route: 041
     Dates: start: 20221107, end: 20221107
  4. SODIUM CHLORIDE [Suspect]
     Active Substance: SODIUM CHLORIDE
     Dosage: 500 ML, QD, USED TO DILUTE 40 MG NEDAPLATIN
     Route: 041
     Dates: start: 20221107, end: 20221108
  5. DEXTROSE MONOHYDRATE [Suspect]
     Active Substance: DEXTROSE MONOHYDRATE
     Indication: Medication dilution
     Dosage: 5%, 500 ML, QD, USED TO DILUTE 20 ML FLUOROURACIL
     Route: 041
     Dates: start: 20221107, end: 20221107
  6. FLUOROURACIL [Suspect]
     Active Substance: FLUOROURACIL
     Indication: Neoplasm malignant
     Dosage: 20 ML, QD, DILUTED WITH 500 ML 5% GLUCOSE
     Route: 041
     Dates: start: 20221107, end: 20221107
  7. FLUOROURACIL [Suspect]
     Active Substance: FLUOROURACIL
     Indication: Chemotherapy
  8. NEDAPLATIN [Suspect]
     Active Substance: NEDAPLATIN
     Indication: Neoplasm malignant
     Dosage: 40 MG, QD, DOSAGE FORM: LYOPHILIZED POWDER, DILUTED WITH 500 ML 0.9% SODIUM CHLORIDE
     Route: 041
     Dates: start: 20221107, end: 20221108
  9. NEDAPLATIN [Suspect]
     Active Substance: NEDAPLATIN
     Indication: Chemotherapy

REACTIONS (2)
  - White blood cell count decreased [Recovering/Resolving]
  - Neutrophil count decreased [Recovering/Resolving]

NARRATIVE: CASE EVENT DATE: 20221202
